FAERS Safety Report 19011534 (Version 1)
Quarter: 2021Q1

REPORT INFORMATION
  Report Type: Spontaneous
  Country: US (occurrence: US)
  Receive Date: 20210315
  Receipt Date: 20210315
  Transmission Date: 20210420
  Serious: Yes (Hospitalization)
  Sender: FDA-Public Use
  Company Number: None

PATIENT
  Age: 63 Year
  Sex: Female

DRUGS (2)
  1. PROMACTA [Suspect]
     Active Substance: ELTROMBOPAG OLAMINE
     Indication: THROMBOCYTOPENIA
     Route: 048
     Dates: start: 20200807
  2. JAKAFI [Concomitant]
     Active Substance: RUXOLITINIB

REACTIONS (3)
  - Fall [None]
  - Asthenia [None]
  - Balance disorder [None]

NARRATIVE: CASE EVENT DATE: 202103
